FAERS Safety Report 11315047 (Version 2)
Quarter: 2022Q1

REPORT INFORMATION
  Report Type: Report from Study
  Country: US (occurrence: US)
  Receive Date: 20150727
  Receipt Date: 20220210
  Transmission Date: 20220423
  Serious: Yes (Hospitalization, Other)
  Sender: FDA-Public Use
  Company Number: US-JAZZ-2015-US-010862

PATIENT
  Age: 57 Year
  Sex: Female
  Weight: 58.957 kg

DRUGS (12)
  1. XYREM [Suspect]
     Active Substance: SODIUM OXYBATE
     Indication: Narcolepsy
     Dosage: 4.5 GRAM, BID
     Route: 048
     Dates: start: 200506, end: 2007
  2. XYREM [Suspect]
     Active Substance: SODIUM OXYBATE
     Indication: Cataplexy
     Dosage: 3 GRAM, BID
     Route: 048
     Dates: start: 200810
  3. XYREM [Suspect]
     Active Substance: SODIUM OXYBATE
     Indication: Somnolence
  4. SEROQUEL XR [Concomitant]
     Active Substance: QUETIAPINE FUMARATE
     Indication: Bipolar disorder
     Dosage: 150 MG, QD
     Dates: start: 20131230
  5. TAMOXIFEN [Concomitant]
     Active Substance: TAMOXIFEN
     Indication: Breast cancer
     Dosage: UNK
  6. NAPROXEN [Concomitant]
     Active Substance: NAPROXEN
     Indication: Migraine
     Dosage: UNK
     Dates: start: 20120301
  7. DEPAKOTE [Concomitant]
     Active Substance: DIVALPROEX SODIUM
     Indication: Product used for unknown indication
     Dosage: OTH
     Dates: start: 20151228
  8. PROVIGIL [Concomitant]
     Active Substance: MODAFINIL
     Indication: Product used for unknown indication
     Dosage: UNK
     Dates: start: 20151228
  9. ALEVE [Concomitant]
     Active Substance: NAPROXEN SODIUM
     Indication: Migraine
     Dosage: CAPLET
     Dates: start: 20160301
  10. ALEVE [Concomitant]
     Active Substance: NAPROXEN SODIUM
     Indication: Back pain
  11. ALEVE [Concomitant]
     Active Substance: NAPROXEN SODIUM
     Indication: Sciatica
  12. QUETIAPINE FUMARATE [Concomitant]
     Active Substance: QUETIAPINE FUMARATE
     Indication: Product used for unknown indication
     Dosage: OTH
     Dates: start: 20200401

REACTIONS (3)
  - Abdominal adhesions [Recovered/Resolved]
  - Intestinal obstruction [Recovered/Resolved]
  - Bowel obstruction surgery [Recovered/Resolved]

NARRATIVE: CASE EVENT DATE: 20150601
